FAERS Safety Report 6407635-5 (Version None)
Quarter: 2009Q4

REPORT INFORMATION
  Report Type: 
  Country: None (occurrence: None)
  Receive Date: 20091020
  Receipt Date: 20091008
  Transmission Date: 20100525
  Serious: Yes (Other)
  Sender: FDA-Public Use
  Company Number: PHHY2009IT44656

PATIENT
  Age: 80 Year
  Sex: Female

DRUGS (4)
  1. ZOLEDRONIC ACID [Suspect]
     Indication: METASTASES TO BONE
     Route: 042
  2. EXEMESTANE [Concomitant]
  3. NITROGLYCERIN [Concomitant]
  4. PARACETAMOL [Concomitant]

REACTIONS (1)
  - OSTEONECROSIS [None]
